FAERS Safety Report 11370379 (Version 1)
Quarter: 2015Q3

REPORT INFORMATION
  Report Type: Report from Study
  Country: US (occurrence: US)
  Receive Date: 20150812
  Receipt Date: 20150812
  Transmission Date: 20151125
  Serious: Yes (Life-Threatening, Other)
  Sender: FDA-Public Use
  Company Number: US-009507513-1508USA003321

PATIENT

DRUGS (2)
  1. TEMOZOLOMIDE. [Suspect]
     Active Substance: TEMOZOLOMIDE
     Dosage: 150-200 MG/M2, QD FOR 5 CONSECUTIVE DAYS REPEATED EVERY 28 DAYS.
  2. TEMOZOLOMIDE. [Suspect]
     Active Substance: TEMOZOLOMIDE
     Indication: GLIOMA
     Dosage: 75 MG/M2, FOR 6 TO 7 WEEKS AT THE START OF RADIATION THERAPY

REACTIONS (1)
  - Lymphopenia [Unknown]
